FAERS Safety Report 8135034-7 (Version None)
Quarter: 2012Q1

REPORT INFORMATION
  Report Type: 
  Country: None (occurrence: None)
  Receive Date: 20120210
  Receipt Date: 20120129
  Transmission Date: 20120608
  Serious: Yes (Other)
  Sender: FDA-Public Use
  Company Number: 2012P1003542

PATIENT
  Age: 48 Year
  Sex: Female
  Weight: 52.6173 kg

DRUGS (10)
  1. FENTANYL [Suspect]
     Indication: GASTROENTERITIS
     Dosage: 1 PATCH
     Dates: start: 19990101, end: 20030101
  2. FENTANYL [Suspect]
     Indication: PSEUDOCYST
     Dosage: 1 PATCH
     Dates: start: 19990101, end: 20030101
  3. CORTISOL [Concomitant]
  4. FENTANYL [Suspect]
     Indication: PSEUDOCYST
     Dosage: 50 MCG/HR
     Dates: start: 20030101, end: 20110101
  5. FENTANYL [Suspect]
     Indication: GASTROENTERITIS
     Dosage: 50 MCG/HR
     Dates: start: 20030101, end: 20110101
  6. FENTANYL-75 [Suspect]
     Indication: PSEUDOCYST
     Dosage: 1 PATCH;Q3D
     Dates: start: 20110101
  7. FENTANYL-75 [Suspect]
     Indication: GASTROENTERITIS
     Dosage: 1 PATCH;Q3D
     Dates: start: 20110101
  8. SYNTHROID [Concomitant]
  9. PREDNISONE TAB [Concomitant]
  10. ADDITIONAL UNSPECIFIED MEDICATIONS [Concomitant]

REACTIONS (5)
  - DRUG DOSE OMISSION [None]
  - FIBROMYALGIA [None]
  - ARTHRITIS [None]
  - SYSTEMIC LUPUS ERYTHEMATOSUS [None]
  - NIGHT SWEATS [None]
